FAERS Safety Report 12624313 (Version 1)
Quarter: 2016Q3

REPORT INFORMATION
  Report Type: Spontaneous
  Country: US (occurrence: US)
  Receive Date: 20160805
  Receipt Date: 20160805
  Transmission Date: 20161109
  Serious: No
  Sender: FDA-Public Use
  Company Number: US-009507513-1607USA006276

PATIENT
  Sex: Female

DRUGS (1)
  1. NUVARING [Suspect]
     Active Substance: ETHINYL ESTRADIOL\ETONOGESTREL
     Dosage: 28 DAYS CONTINUOUS USE
     Route: 067

REACTIONS (5)
  - Incorrect drug administration duration [Unknown]
  - Menorrhagia [Unknown]
  - Metrorrhagia [Unknown]
  - Drug prescribing error [Unknown]
  - Amenorrhoea [Unknown]
